FAERS Safety Report 24204415 (Version 1)
Quarter: 2024Q3

REPORT INFORMATION
  Report Type: Spontaneous
  Country: ES (occurrence: ES)
  Receive Date: 20240813
  Receipt Date: 20240813
  Transmission Date: 20241016
  Serious: Yes (Death, Other)
  Sender: AUROBINDO
  Company Number: ES-AEMPS-1557509

PATIENT
  Age: 1 Hour
  Sex: Female
  Weight: 3 kg

DRUGS (2)
  1. AMOXICILLIN [Suspect]
     Active Substance: AMOXICILLIN
     Indication: Respiratory tract infection
     Dosage: 750 MILLIGRAM, 3 TIMES A DAY
     Route: 065
     Dates: start: 20230130, end: 20230204
  2. CHLORINE DIOXIDE [Suspect]
     Active Substance: CHLORINE DIOXIDE
     Indication: Respiratory tract infection
     Dosage: 10 MILLILITER, ONCE A DAY
     Route: 064
     Dates: start: 20230130, end: 20230130

REACTIONS (2)
  - Hypoplastic left heart syndrome [Fatal]
  - Foetal exposure during pregnancy [Fatal]

NARRATIVE: CASE EVENT DATE: 20230130
